FAERS Safety Report 19680690 (Version 1)
Quarter: 2021Q3

REPORT INFORMATION
  Report Type: Spontaneous
  Country: CO (occurrence: CO)
  Receive Date: 20210810
  Receipt Date: 20210810
  Transmission Date: 20211014
  Serious: Yes (Other)
  Sender: FDA-Public Use
  Company Number: CO-PFIZER INC-202100957768

PATIENT
  Age: 45 Year
  Sex: Female

DRUGS (1)
  1. FENTANYL CITRATE. [Suspect]
     Active Substance: FENTANYL CITRATE
     Indication: GENERAL ANAESTHESIA
     Dosage: UNK

REACTIONS (1)
  - Thrombocytopenia [Unknown]
